FAERS Safety Report 8313701-X (Version None)
Quarter: 2012Q2

REPORT INFORMATION
  Report Type: 
  Country: None (occurrence: None)
  Receive Date: 20120426
  Receipt Date: 20120417
  Transmission Date: 20120825
  Serious: Yes (Life-Threatening, Other)
  Sender: FDA-Public Use
  Company Number: PHEH2012US005204

PATIENT
  Sex: Female

DRUGS (1)
  1. EXJADE [Suspect]
     Indication: IRON METABOLISM DISORDER
     Dosage: 1500 MG QD
     Route: 048

REACTIONS (11)
  - BONE PAIN [None]
  - ANAEMIA [None]
  - FALL [None]
  - TERMINAL STATE [None]
  - HAEMOGLOBIN DECREASED [None]
  - HEPATIC NEOPLASM MALIGNANT [None]
  - BALANCE DISORDER [None]
  - CONFUSIONAL STATE [None]
  - NEOPLASM PROGRESSION [None]
  - ASTHENIA [None]
  - LIVER DISORDER [None]
